FAERS Safety Report 7093107-4 (Version None)
Quarter: 2010Q4

REPORT INFORMATION
  Report Type: 
  Country: None (occurrence: None)
  Receive Date: 20101110
  Receipt Date: 20101101
  Transmission Date: 20110411
  Serious: Yes (Hospitalization)
  Sender: FDA-Public Use
  Company Number: JP-BRISTOL-MYERS SQUIBB COMPANY-15370711

PATIENT
  Age: 40 Year
  Sex: Male

DRUGS (4)
  1. EFAVIRENZ CAPS 600 MG [Suspect]
     Indication: HIV INFECTION
     Route: 048
     Dates: start: 20090223
  2. TENOFOVIR DF + EMTRICITABINE [Suspect]
     Indication: HIV INFECTION
     Dosage: 1 DF:1 TAB/DAY
     Route: 048
     Dates: start: 20090223
  3. RIFABUTIN [Suspect]
     Indication: MYCOBACTERIUM AVIUM COMPLEX INFECTION
     Dates: start: 20090312, end: 20091014
  4. ETHAMBUTOL HYDROCHLORIDE [Concomitant]
     Indication: MYCOBACTERIUM AVIUM COMPLEX INFECTION
     Dates: start: 20090312, end: 20091014

REACTIONS (1)
  - HERPES ZOSTER [None]
